FAERS Safety Report 14977078 (Version 2)
Quarter: 2018Q2

REPORT INFORMATION
  Report Type: Report from Study
  Country: None (occurrence: US)
  Receive Date: 20180606
  Receipt Date: 20180621
  Transmission Date: 20180711
  Serious: Yes (Other)
  Sender: FDA-Public Use
  Company Number: US-ABBVIE-18K-163-2372818-00

PATIENT
  Age: 63 Year
  Sex: Female

DRUGS (3)
  1. HUMIRA [Suspect]
     Active Substance: ADALIMUMAB
     Dosage: LOADING DOSE
     Route: 058
     Dates: start: 20180424, end: 20180424
  2. HUMIRA [Suspect]
     Active Substance: ADALIMUMAB
     Route: 058
     Dates: start: 20180508
  3. HUMIRA [Suspect]
     Active Substance: ADALIMUMAB
     Indication: CROHN^S DISEASE
     Dosage: LOADING DOSE
     Route: 058
     Dates: start: 20180410, end: 20180410

REACTIONS (20)
  - Weight decreased [Unknown]
  - Decreased appetite [Recovering/Resolving]
  - Constipation [Recovered/Resolved]
  - Haematochezia [Unknown]
  - Food intolerance [Unknown]
  - Diarrhoea [Recovered/Resolved]
  - Pain [Recovering/Resolving]
  - Insomnia [Not Recovered/Not Resolved]
  - Flatulence [Recovering/Resolving]
  - Vomiting [Recovered/Resolved]
  - Nausea [Recovered/Resolved]
  - Abdominal pain upper [Recovered/Resolved]
  - Eructation [Recovering/Resolving]
  - Night sweats [Recovered/Resolved]
  - Rectal haemorrhage [Recovering/Resolving]
  - Diarrhoea [Not Recovered/Not Resolved]
  - Anal fistula [Unknown]
  - Fatigue [Recovering/Resolving]
  - Proctalgia [Recovering/Resolving]
  - Fistula discharge [Unknown]

NARRATIVE: CASE EVENT DATE: 2018
